FAERS Safety Report 9630208 (Version 1)
Quarter: 2013Q4

REPORT INFORMATION
  Report Type: Spontaneous
  Country: TN (occurrence: TN)
  Receive Date: 20131017
  Receipt Date: 20131017
  Transmission Date: 20140711
  Serious: Yes (Other)
  Sender: FDA-Public Use
  Company Number: PHHY2013TN113717

PATIENT
  Age: 47 Year
  Sex: Male

DRUGS (1)
  1. TRAMADOL [Suspect]
     Indication: BACK PAIN
     Dosage: 1700 MG, QD

REACTIONS (7)
  - Muscle spasms [Unknown]
  - Restlessness [Unknown]
  - Formication [Unknown]
  - Drug dependence [Unknown]
  - Dysphoria [Unknown]
  - Anxiety [Unknown]
  - Drug withdrawal syndrome [Unknown]
